FAERS Safety Report 4901345-9 (Version None)
Quarter: 2006Q1

REPORT INFORMATION
  Report Type: 
  Country: None (occurrence: None)
  Receive Date: 20060206
  Receipt Date: 20060130
  Transmission Date: 20060701
  Serious: Yes (Death, Other)
  Sender: FDA-Public Use
  Company Number: US-BRISTOL-MYERS SQUIBB COMPANY-13263553

PATIENT
  Age: 55 Year
  Sex: Male
  Weight: 64 kg

DRUGS (13)
  1. TEQUIN [Suspect]
     Indication: SEPSIS
     Route: 042
     Dates: start: 20051125, end: 20051126
  2. TEQUIN [Suspect]
     Indication: PNEUMONIA
     Route: 042
     Dates: start: 20051125, end: 20051126
  3. REGULAR INSULIN [Concomitant]
     Dosage: SLIDING SCALE
     Route: 058
     Dates: start: 20051125
  4. XIGRIS [Concomitant]
     Route: 042
  5. VASOPRESSIN [Concomitant]
     Dosage: CONTINUOUS INFUSION
     Route: 042
  6. DOBUTAMINE HCL [Concomitant]
     Dosage: CONTINUOUS INFUSION
     Route: 042
  7. DEPACON [Concomitant]
     Route: 042
  8. LOVENOX [Concomitant]
     Route: 058
  9. PEPCID [Concomitant]
     Route: 042
  10. POTASSIUM CHLORIDE [Concomitant]
     Route: 050
  11. LASIX [Concomitant]
     Route: 042
  12. MAXIPIME [Concomitant]
     Route: 042
  13. DEPAKOTE [Concomitant]

REACTIONS (3)
  - CARDIAC ARREST [None]
  - DEATH [None]
  - HYPOGLYCAEMIA [None]
